FAERS Safety Report 21525077 (Version 1)
Quarter: 2022Q4

REPORT INFORMATION
  Report Type: Spontaneous
  Country: DK (occurrence: DK)
  Receive Date: 20221030
  Receipt Date: 20221030
  Transmission Date: 20230112
  Serious: Yes (Hospitalization)
  Sender: FDA-Public Use
  Company Number: None

PATIENT
  Age: 38 Year
  Sex: Female

DRUGS (1)
  1. PREGABALIN [Suspect]
     Active Substance: PREGABALIN
     Indication: Anxiety
     Dosage: DOSE: ACCORDING TO SCHEDULE, STRENGTH: 25 MG
     Route: 065
     Dates: start: 20210112, end: 2021

REACTIONS (11)
  - Apathy [Unknown]
  - Tremor [Unknown]
  - Palpitations [Unknown]
  - Vomiting [Unknown]
  - Withdrawal syndrome [Unknown]
  - Feeling abnormal [Unknown]
  - Suicidal ideation [Unknown]
  - Dizziness [Unknown]
  - Headache [Unknown]
  - Tinnitus [Unknown]
  - Fatigue [Unknown]

NARRATIVE: CASE EVENT DATE: 20210101
